FAERS Safety Report 8523218-5 (Version None)
Quarter: 2012Q3

REPORT INFORMATION
  Report Type: 
  Country: None (occurrence: None)
  Receive Date: 20120720
  Receipt Date: 20120712
  Transmission Date: 20120928
  Serious: Yes (Hospitalization)
  Sender: FDA-Public Use
  Company Number: US-BAYER-2012-071537

PATIENT
  Age: 40 Year
  Sex: Female
  Weight: 95.238 kg

DRUGS (13)
  1. BUSPIRONE HCL [Concomitant]
     Dosage: 15 MG, BID
     Route: 048
     Dates: start: 20090101, end: 20110101
  2. YAZ [Suspect]
     Indication: PREMENSTRUAL SYNDROME
  3. YASMIN [Suspect]
  4. ABILIFY [Concomitant]
     Indication: BIPOLAR DISORDER
     Dosage: 40 MG, BID
     Route: 048
     Dates: start: 20100512
  5. PAROXETINE [Concomitant]
     Dosage: 40 MG, UNK
     Route: 048
     Dates: start: 20090101, end: 20110101
  6. YAZ [Suspect]
     Indication: MENSTRUAL CYCLE MANAGEMENT
  7. VICODIN [Concomitant]
  8. ACAPELLA [Concomitant]
  9. ACETAMINOPHEN W/ PROPOXYPHENE HCL [Concomitant]
     Dosage: 100-650 MG
     Route: 048
     Dates: start: 20100416
  10. HYDROCODONE BITARTRATE AND ACETAMINOPHEN [Concomitant]
     Dosage: 5-500 MG
     Route: 048
     Dates: start: 20100516
  11. XANAX [Concomitant]
     Indication: ANXIETY
     Dosage: 0.5 MG, UNK
     Route: 048
     Dates: start: 20091019, end: 20100512
  12. ALBUTEROL [Concomitant]
     Indication: BRONCHIAL HYPERREACTIVITY
     Dosage: 1-2 PUFFS, PRN
     Dates: start: 20100108, end: 20100512
  13. SODIUM CHLORIDE [Concomitant]

REACTIONS (1)
  - PULMONARY EMBOLISM [None]
